FAERS Safety Report 7532370-X (Version None)
Quarter: 2011Q2

REPORT INFORMATION
  Report Type: 
  Country: None (occurrence: None)
  Receive Date: 20110608
  Receipt Date: 20110603
  Transmission Date: 20111010
  Serious: Yes (Hospitalization, Other)
  Sender: FDA-Public Use
  Company Number: US-PFIZER INC-2009262115

PATIENT
  Sex: Female

DRUGS (1)
  1. CHANTIX [Suspect]
     Indication: SMOKING CESSATION THERAPY
     Dosage: 1 MG, UNK
     Dates: start: 20070129, end: 20080212

REACTIONS (7)
  - SUICIDE ATTEMPT [None]
  - PARANOIA [None]
  - AGGRESSION [None]
  - INSOMNIA [None]
  - INTENTIONAL OVERDOSE [None]
  - DEPRESSION [None]
  - ANXIETY [None]
